FAERS Safety Report 12374219 (Version 1)
Quarter: 2016Q2

REPORT INFORMATION
  Report Type: Spontaneous
  Country: US (occurrence: None)
  Receive Date: 20160516
  Receipt Date: 20160516
  Transmission Date: 20160815
  Serious: No
  Sender: FDA-Public Use
  Company Number: None

PATIENT
  Age: 68 Year
  Sex: Male

DRUGS (5)
  1. EXJADE [Suspect]
     Active Substance: DEFERASIROX
     Indication: MYELOID LEUKAEMIA
     Dosage: 2000MG-DISPCRSE W JUICE OR H2O   PO-SUSP
     Route: 048
     Dates: start: 20140401, end: 201604
  2. LEVOTHYROXIN [Concomitant]
     Active Substance: LEVOTHYROXINE
  3. ALLOPURINOL. [Concomitant]
     Active Substance: ALLOPURINOL
  4. ATROVASTATIN [Concomitant]
     Active Substance: ATORVASTATIN CALCIUM
  5. FOLIC ACID. [Concomitant]
     Active Substance: FOLIC ACID

REACTIONS (2)
  - Renal impairment [None]
  - Therapy cessation [None]

NARRATIVE: CASE EVENT DATE: 201604
